FAERS Safety Report 16919828 (Version 1)
Quarter: 2019Q4

REPORT INFORMATION
  Report Type: Spontaneous
  Country: NO (occurrence: NO)
  Receive Date: 20191015
  Receipt Date: 20191015
  Transmission Date: 20200122
  Serious: Yes (Other)
  Sender: FDA-Public Use
  Company Number: NO-SIGMAPHARM LABORATORIES, LLC-2019SIG00115

PATIENT
  Age: 44 Day
  Sex: Male

DRUGS (4)
  1. ANTIFUNGAL THERAPY [Concomitant]
     Indication: SEPSIS
     Dosage: UNK
     Route: 065
  2. ANTIBIOTIC THERAPY [Concomitant]
     Indication: SEPSIS
     Dosage: UNK
     Route: 065
  3. ACITRETIN. [Suspect]
     Active Substance: ACITRETIN
     Indication: HARLEQUIN SYNDROME
     Dosage: 0.5 MG/KG/DAY
     Route: 065
  4. ACITRETIN. [Suspect]
     Active Substance: ACITRETIN
     Dosage: 1 MG/KG/DAY
     Route: 065

REACTIONS (2)
  - Osteopenia [Recovered/Resolved]
  - Limb fracture [Recovered/Resolved]
